FAERS Safety Report 10714895 (Version 1)
Quarter: 2015Q1

REPORT INFORMATION
  Report Type: Report from Study
  Country: US (occurrence: US)
  Receive Date: 20150115
  Receipt Date: 20150115
  Transmission Date: 20150721
  Serious: Yes (Other)
  Sender: FDA-Public Use
  Company Number: US-ACTELION-A-NJ2015-111087

PATIENT
  Age: 57 Year
  Sex: Female

DRUGS (2)
  1. REMODULIN [Concomitant]
     Active Substance: TREPROSTINIL
  2. TRACLEER [Suspect]
     Active Substance: BOSENTAN\BOSENTAN MONOHYDRATE
     Indication: PULMONARY ARTERIAL HYPERTENSION
     Dosage: UNK
     Route: 048

REACTIONS (8)
  - Hyperhidrosis [Recovering/Resolving]
  - Spinal column injury [Recovering/Resolving]
  - Syncope [Recovering/Resolving]
  - Nausea [Recovering/Resolving]
  - Electrocardiogram ambulatory [Unknown]
  - Fall [Recovering/Resolving]
  - Rib fracture [Recovering/Resolving]
  - Heart rate irregular [Recovering/Resolving]

NARRATIVE: CASE EVENT DATE: 201411
